FAERS Safety Report 5605786-6 (Version None)
Quarter: 2008Q1

REPORT INFORMATION
  Report Type: 
  Country: None (occurrence: None)
  Receive Date: 20080129
  Receipt Date: 20080122
  Transmission Date: 20080703
  Serious: Yes (Other)
  Sender: FDA-Public Use
  Company Number: US-ROCHE-542690

PATIENT
  Age: 59 Year
  Sex: Female

DRUGS (3)
  1. PEG-INTERFERON A-2A (RO 25-8310) [Suspect]
     Route: 065
     Dates: start: 20060505, end: 20070330
  2. RIBAVIRIN [Suspect]
     Route: 065
     Dates: start: 20060505, end: 20070330
  3. DIURETICS NOS [Concomitant]
     Dosage: PATIENT IS ON 4 DIFFERENT UNSPECIFIED DIURETICS

REACTIONS (1)
  - GLOMERULONEPHRITIS MEMBRANOUS [None]
